FAERS Safety Report 16099916 (Version 1)
Quarter: 2019Q1

REPORT INFORMATION
  Report Type: Report from Study
  Country: US (occurrence: US)
  Receive Date: 20190321
  Receipt Date: 20190321
  Transmission Date: 20190418
  Serious: Yes (Other)
  Sender: FDA-Public Use
  Company Number: US-MALLINCKRODT-T201800441

PATIENT
  Age: 38 Year
  Sex: Male

DRUGS (8)
  1. REPOSITORY CORTICOTROPIN INJECTION [Suspect]
     Active Substance: CORTICOTROPIN
     Dosage: 80 UNITS/1 ML, TWO TIMES PER WEEK (TUESDAY/THURSDAY)
     Route: 058
  2. REPOSITORY CORTICOTROPIN INJECTION [Suspect]
     Active Substance: CORTICOTROPIN
     Dosage: 40 UNITS/.5ML, 2 TIMES PER WEEK TUESDAY/THURSDAY
     Route: 058
     Dates: start: 2018
  3. REPOSITORY CORTICOTROPIN INJECTION [Suspect]
     Active Substance: CORTICOTROPIN
     Dosage: 40 UNITS / .5 ML, 2 TIMES PER WEEK (FRIDAY)
     Route: 058
     Dates: start: 2018, end: 2018
  4. REPOSITORY CORTICOTROPIN INJECTION [Suspect]
     Active Substance: CORTICOTROPIN
     Indication: SARCOIDOSIS
     Dosage: 40 UNITS / .5 ML, 2 TIMES PER WEEK (FRIDAY)
     Route: 058
     Dates: start: 20170804
  5. REPOSITORY CORTICOTROPIN INJECTION [Suspect]
     Active Substance: CORTICOTROPIN
     Dosage: 80 UNITS/1 ML, TWO TIMES PER WEEK (AS DIRECTED)
     Route: 058
  6. REPOSITORY CORTICOTROPIN INJECTION [Suspect]
     Active Substance: CORTICOTROPIN
     Dosage: 40 UNITS/.5ML, 2 TIMES PER WEEK TUESDAY/THURSDAY
     Route: 058
  7. REPOSITORY CORTICOTROPIN INJECTION [Suspect]
     Active Substance: CORTICOTROPIN
     Dosage: 40 UNITS/0.5 ML, 2 TIMES PER WEEK, TUESDAY/ THURSDAY
     Route: 058
     Dates: start: 2018, end: 2018
  8. REPOSITORY CORTICOTROPIN INJECTION [Suspect]
     Active Substance: CORTICOTROPIN
     Dosage: 80 UNITS/1 ML, TWO TIMES PER WEEK (AS DIRECTED)
     Route: 058
     Dates: start: 2018, end: 2018

REACTIONS (20)
  - Immune system disorder [Unknown]
  - Dizziness [Unknown]
  - Fatigue [Unknown]
  - Sarcoidosis [Unknown]
  - Chest discomfort [Recovering/Resolving]
  - Sensitivity to weather change [Not Recovered/Not Resolved]
  - Product storage error [Unknown]
  - Contusion [Not Recovered/Not Resolved]
  - Peripheral swelling [Recovering/Resolving]
  - Product dose omission [Unknown]
  - Malaise [Unknown]
  - Underdose [Unknown]
  - Cough [Recovering/Resolving]
  - Hypersensitivity [Unknown]
  - Condition aggravated [Unknown]
  - Abdominal distension [Unknown]
  - Pain [Not Recovered/Not Resolved]
  - Mass [Unknown]
  - Memory impairment [Unknown]
  - Drug ineffective [Unknown]

NARRATIVE: CASE EVENT DATE: 201710
